FAERS Safety Report 8837649 (Version 2)
Quarter: 2012Q4

REPORT INFORMATION
  Report Type: 
  Country: SE (occurrence: SE)
  Receive Date: 20121012
  Receipt Date: 20121210
  Transmission Date: 20130627
  Serious: Yes (Other)
  Sender: FDA-Public Use
  Company Number: PHHY2012SE022990

PATIENT
  Age: 54 Year
  Sex: Male

DRUGS (6)
  1. CLOZAPINE [Suspect]
     Route: 048
  2. CLOZAPINE [Suspect]
     Dosage: UNK
     Route: 048
     Dates: start: 20120814
  3. LEPONEX [Suspect]
     Route: 048
  4. CLOZAPINE ACTAVIS [Suspect]
     Route: 048
  5. METHYLSCOPOLAMINE [Concomitant]
  6. SPIRIVA [Concomitant]

REACTIONS (10)
  - Cognitive disorder [Not Recovered/Not Resolved]
  - Abnormal behaviour [Not Recovered/Not Resolved]
  - Blood pressure increased [Unknown]
  - Hyperglycaemia [Not Recovered/Not Resolved]
  - Decreased activity [Not Recovered/Not Resolved]
  - Skin disorder [Not Recovered/Not Resolved]
  - Hypomania [Not Recovered/Not Resolved]
  - Anxiety [Not Recovered/Not Resolved]
  - Salivary hypersecretion [Not Recovered/Not Resolved]
  - Fatigue [Not Recovered/Not Resolved]
